FAERS Safety Report 11118066 (Version 2)
Quarter: 2015Q2

REPORT INFORMATION
  Report Type: Report from Study
  Country: JP (occurrence: JP)
  Receive Date: 20150518
  Receipt Date: 20150520
  Transmission Date: 20150821
  Serious: Yes (Other)
  Sender: FDA-Public Use
  Company Number: JP-ROCHE-1577330

PATIENT
  Age: 19 Year
  Sex: Male

DRUGS (20)
  1. CLONAZEPAM. [Suspect]
     Active Substance: CLONAZEPAM
     Indication: PARTIAL SEIZURES
  2. POTASSIUM BROMIDE [Suspect]
     Active Substance: POTASSIUM BROMIDE
     Indication: ENCEPHALITIS
     Dosage: DOSAGE IS UNCERTAIN.
     Route: 065
  3. KEPPRA [Suspect]
     Active Substance: LEVETIRACETAM
     Route: 048
  4. DIAZEPAM. [Concomitant]
     Active Substance: DIAZEPAM
     Dosage: DOSAGE IS UNCERTAIN.
     Route: 065
  5. PHENYTOIN. [Concomitant]
     Active Substance: PHENYTOIN
     Route: 065
  6. LAMICTAL [Suspect]
     Active Substance: LAMOTRIGINE
     Indication: ENCEPHALITIS
     Dosage: DOSAGE IS UNCERTAIN.
     Route: 065
  7. CARBAMAZEPINE. [Suspect]
     Active Substance: CARBAMAZEPINE
     Indication: ENCEPHALITIS
     Dosage: DOSAGE IS UNCERTAIN.
     Route: 065
  8. KEPPRA [Suspect]
     Active Substance: LEVETIRACETAM
     Indication: ENCEPHALITIS
     Dosage: E KEPPRA
     Route: 048
  9. KEPPRA [Suspect]
     Active Substance: LEVETIRACETAM
     Indication: PARTIAL SEIZURES
     Route: 048
  10. SOLU-MEDROL [Concomitant]
     Active Substance: METHYLPREDNISOLONE SODIUM SUCCINATE
     Dosage: METHYLPREDONINE PULSE THERAPY AND UNCERTAIN DOSAGE
     Route: 042
  11. CARBAMAZEPINE. [Suspect]
     Active Substance: CARBAMAZEPINE
     Indication: PARTIAL SEIZURES
  12. LAMICTAL [Suspect]
     Active Substance: LAMOTRIGINE
     Indication: PARTIAL SEIZURES
  13. PHENOBARBITAL. [Concomitant]
     Active Substance: PHENOBARBITAL
     Route: 065
  14. GABAPENTIN. [Concomitant]
     Active Substance: GABAPENTIN
     Route: 065
  15. CLONAZEPAM. [Suspect]
     Active Substance: CLONAZEPAM
     Indication: ENCEPHALITIS
     Route: 048
  16. ZONISAMIDE. [Concomitant]
     Active Substance: ZONISAMIDE
     Route: 065
  17. PHENYTOIN. [Concomitant]
     Active Substance: PHENYTOIN
     Route: 065
  18. POTASSIUM BROMIDE [Suspect]
     Active Substance: POTASSIUM BROMIDE
     Indication: PARTIAL SEIZURES
  19. MIDAZOLAM [Concomitant]
     Active Substance: MIDAZOLAM\MIDAZOLAM HYDROCHLORIDE
     Dosage: DOSAGE IS UNCERTAIN.
     Route: 065
  20. PHENYTOIN. [Concomitant]
     Active Substance: PHENYTOIN
     Route: 065

REACTIONS (5)
  - Abnormal behaviour [Unknown]
  - Bromoderma [Unknown]
  - Somnolence [Unknown]
  - Agitation [Unknown]
  - Insomnia [Unknown]
